FAERS Safety Report 4682685-8 (Version None)
Quarter: 2005Q2

REPORT INFORMATION
  Report Type: 
  Country: None (occurrence: None)
  Receive Date: 20050606
  Receipt Date: 20050524
  Transmission Date: 20051028
  Serious: Yes (Other)
  Sender: FDA-Public Use
  Company Number: GB-GLAXOSMITHKLINE-B0383358A

PATIENT
  Sex: Female

DRUGS (4)
  1. PAROXETINE HYDROCHLORIDE [Suspect]
     Route: 065
     Dates: start: 19971201
  2. THIORIDAZINE HCL [Concomitant]
     Route: 065
  3. LITHIUM [Concomitant]
     Route: 065
  4. ZOPLICONE [Concomitant]
     Route: 065

REACTIONS (6)
  - DEPRESSED MOOD [None]
  - DISTURBANCE IN ATTENTION [None]
  - OVERDOSE [None]
  - SELF-INJURIOUS IDEATION [None]
  - SUICIDE ATTEMPT [None]
  - TEARFULNESS [None]
